FAERS Safety Report 5995958-3 (Version None)
Quarter: 2008Q4

REPORT INFORMATION
  Report Type: 
  Country: None (occurrence: None)
  Receive Date: 20081212
  Receipt Date: 20081007
  Transmission Date: 20090506
  Serious: No
  Sender: FDA-Public Use
  Company Number: US-ABBOTT-08P-163-0480158-00

PATIENT
  Sex: Male
  Weight: 81.72 kg

DRUGS (9)
  1. HUMIRA [Suspect]
     Indication: CROHN'S DISEASE
     Route: 058
     Dates: start: 20081006, end: 20081006
  2. HUMIRA [Suspect]
     Route: 058
  3. HUMIRA [Suspect]
     Route: 058
  4. MERCATOPURINE [Concomitant]
     Indication: PROSTATOMEGALY
  5. DIOVAN HCT [Concomitant]
     Indication: HYPERTENSION
  6. ESCITALOPRAM OXALATE [Concomitant]
     Indication: DEPRESSION
  7. AMLODIPINE MALEATE [Concomitant]
     Indication: HYPERTENSION
  8. MONTELUKAST SODIUM [Concomitant]
     Indication: SINUS DISORDER
  9. MENTHOL [Concomitant]
     Indication: ARTHRITIS

REACTIONS (1)
  - ACCIDENTAL EXPOSURE [None]
